FAERS Safety Report 5289758-X (Version None)
Quarter: 2007Q2

REPORT INFORMATION
  Report Type: 
  Country: None (occurrence: None)
  Receive Date: 20070406
  Receipt Date: 20070323
  Transmission Date: 20071010
  Serious: Yes (Other)
  Sender: FDA-Public Use
  Company Number: US-JNJFOC-20070305690

PATIENT
  Sex: Female
  Weight: 64.41 kg

DRUGS (7)
  1. REMICADE [Suspect]
     Indication: RHEUMATOID ARTHRITIS
     Dosage: Q8WKS
     Route: 042
  2. CALCIUM [Concomitant]
  3. METHOTREXATE [Concomitant]
  4. ATENOL [Concomitant]
  5. ATENOLOL [Concomitant]
     Indication: BLOOD PRESSURE
  6. FOLIC ACID [Concomitant]
  7. CELEBREX [Concomitant]

REACTIONS (3)
  - ALOPECIA [None]
  - KIDNEY INFECTION [None]
  - PROTEINURIA [None]
